FAERS Safety Report 18282407 (Version 1)
Quarter: 2020Q3

REPORT INFORMATION
  Report Type: Spontaneous
  Country: US (occurrence: US)
  Receive Date: 20200917
  Receipt Date: 20200917
  Transmission Date: 20201103
  Serious: No
  Sender: FDA-Public Use
  Company Number: None

PATIENT
  Age: 54 Year
  Sex: Female

DRUGS (15)
  1. LINZESS [Concomitant]
     Active Substance: LINACLOTIDE
  2. METHYLPRED [Concomitant]
     Active Substance: METHYLPREDNISOLONE
  3. HUMIRA [Suspect]
     Active Substance: ADALIMUMAB
     Indication: PSORIATIC ARTHROPATHY
     Route: 058
     Dates: start: 20200618
  4. DICLOFENAC GEL [Concomitant]
     Active Substance: DICLOFENAC
  5. DULOXETINE. [Concomitant]
     Active Substance: DULOXETINE
  6. MUPIROCIN. [Concomitant]
     Active Substance: MUPIROCIN
  7. AMOX/K CLAV [Concomitant]
     Active Substance: AMOXICILLIN\CLAVULANATE POTASSIUM
  8. CLOBETASOL [Concomitant]
     Active Substance: CLOBETASOL
  9. LO LOESTRIN FE [Concomitant]
     Active Substance: ETHINYL ESTRADIOL\NORETHINDRONE ACETATE
  10. PRAVASTATIN. [Concomitant]
     Active Substance: PRAVASTATIN
  11. VALACYCLOVIR [Concomitant]
     Active Substance: VALACYCLOVIR HYDROCHLORIDE
  12. GABAPENTIN. [Concomitant]
     Active Substance: GABAPENTIN
  13. ONDANSETRON [Concomitant]
     Active Substance: ONDANSETRON
  14. XIIDRA [Concomitant]
     Active Substance: LIFITEGRAST
  15. TRAMADOL HCL [Concomitant]
     Active Substance: TRAMADOL HYDROCHLORIDE

REACTIONS (3)
  - Therapy interrupted [None]
  - Arthritis [None]
  - Surgery [None]

NARRATIVE: CASE EVENT DATE: 20200910
